FAERS Safety Report 19275297 (Version 1)
Quarter: 2021Q2

REPORT INFORMATION
  Report Type: Spontaneous
  Country: CN (occurrence: CN)
  Receive Date: 20210519
  Receipt Date: 20210519
  Transmission Date: 20210717
  Serious: Yes (Other)
  Sender: FDA-Public Use
  Company Number: CN-PFIZER INC-2021514843

PATIENT
  Age: 13 Year
  Sex: Female
  Weight: 59 kg

DRUGS (11)
  1. PLAQUENIL [Concomitant]
     Active Substance: HYDROXYCHLOROQUINE SULFATE
     Indication: SYSTEMIC LUPUS ERYTHEMATOSUS
     Dosage: 0.2G/DAY
  2. MEDROL [Suspect]
     Active Substance: METHYLPREDNISOLONE
     Indication: SYSTEMIC LUPUS ERYTHEMATOSUS
     Dosage: 32.000 MG, 1X/DAY
     Route: 048
     Dates: start: 20200905, end: 20201015
  3. CELLCEPT [Concomitant]
     Active Substance: MYCOPHENOLATE MOFETIL\MYCOPHENOLATE MOFETIL HYDROCHLORIDE
     Indication: POLYMYOSITIS
  4. PLAQUENIL [Concomitant]
     Active Substance: HYDROXYCHLOROQUINE SULFATE
     Indication: POLYMYOSITIS
  5. SOLU?MEDROL [Suspect]
     Active Substance: METHYLPREDNISOLONE SODIUM SUCCINATE
     Indication: POLYMYOSITIS
     Dosage: 25.000 MG, 2X/DAY
     Route: 041
     Dates: start: 20200819, end: 20200904
  6. SOLU?MEDROL [Suspect]
     Active Substance: METHYLPREDNISOLONE SODIUM SUCCINATE
     Indication: SYSTEMIC LUPUS ERYTHEMATOSUS
     Dosage: 30.000 MG, 2X/DAY
     Route: 041
     Dates: start: 20200717, end: 20200818
  7. MEDROL [Suspect]
     Active Substance: METHYLPREDNISOLONE
     Indication: POLYMYOSITIS
     Dosage: 24.000 MG, 1X/DAY
     Route: 048
     Dates: start: 20201016, end: 20201128
  8. THALIDOMIDE [Suspect]
     Active Substance: THALIDOMIDE
     Indication: POLYMYOSITIS
  9. THALIDOMIDE [Suspect]
     Active Substance: THALIDOMIDE
     Indication: SYSTEMIC LUPUS ERYTHEMATOSUS
     Dosage: 50 MG, 1X/DAY
     Dates: end: 20201228
  10. CELLCEPT [Concomitant]
     Active Substance: MYCOPHENOLATE MOFETIL\MYCOPHENOLATE MOFETIL HYDROCHLORIDE
     Indication: SYSTEMIC LUPUS ERYTHEMATOSUS
     Dosage: 1 G/DAY
  11. MEDROL [Suspect]
     Active Substance: METHYLPREDNISOLONE
     Dosage: 18.000 MG, 1X/DAY
     Route: 048
     Dates: start: 20201129, end: 20201227

REACTIONS (4)
  - Osteonecrosis [Recovering/Resolving]
  - Muscle enzyme increased [Unknown]
  - Arthralgia [Recovering/Resolving]
  - Muscle atrophy [Unknown]

NARRATIVE: CASE EVENT DATE: 20201225
